FAERS Safety Report 4476439-5 (Version None)
Quarter: 2004Q4

REPORT INFORMATION
  Report Type: 
  Country: None (occurrence: None)
  Receive Date: 20041012
  Receipt Date: 20041008
  Transmission Date: 20050328
  Serious: Yes (Other)
  Sender: FDA-Public Use
  Company Number: USA-2004-0017138

PATIENT
  Sex: Female

DRUGS (1)
  1. OXYCONTIN [Suspect]
     Indication: PAIN
     Dosage: 2 MG, DAILY
     Dates: start: 20040701, end: 20040701

REACTIONS (1)
  - RENAL FAILURE ACUTE [None]
